FAERS Safety Report 7520333-X (Version None)
Quarter: 2011Q2

REPORT INFORMATION
  Report Type: 
  Country: None (occurrence: None)
  Receive Date: 20110602
  Receipt Date: 20100302
  Transmission Date: 20111010
  Serious: No
  Sender: FDA-Public Use
  Company Number: US-BAYER-201016314NA

PATIENT
  Age: 51 Year
  Sex: Female

DRUGS (3)
  1. AVELOX [Suspect]
     Indication: ADENOIDITIS
     Dosage: UNK
     Dates: start: 20100101
  2. YASMIN [Concomitant]
  3. TOPROL-XL [Concomitant]

REACTIONS (1)
  - PAIN IN EXTREMITY [None]
